FAERS Safety Report 23193828 (Version 3)
Quarter: 2023Q4

REPORT INFORMATION
  Report Type: Spontaneous
  Country: TR (occurrence: TR)
  Receive Date: 20231116
  Receipt Date: 20231128
  Transmission Date: 20240110
  Serious: Yes (Other)
  Sender: FDA-Public Use
  Company Number: TR-ELI_LILLY_AND_COMPANY-TR202311003774

PATIENT
  Age: 83 Year
  Sex: Female

DRUGS (13)
  1. TERIPARATIDE [Suspect]
     Active Substance: TERIPARATIDE
     Indication: Spinal operation
     Dosage: UNK UNK, UNKNOWN
     Route: 065
  2. TERIPARATIDE [Suspect]
     Active Substance: TERIPARATIDE
     Dosage: UNK UNK, UNKNOWN
     Route: 065
     Dates: end: 20231115
  3. PANTOPRAZOLE SODIUM [Concomitant]
     Active Substance: PANTOPRAZOLE SODIUM
     Indication: Gastrointestinal disorder
  4. EUTROXSIG [Concomitant]
     Active Substance: LEVOTHYROXINE SODIUM
     Indication: Product used for unknown indication
  5. CARDURA [Concomitant]
     Active Substance: DOXAZOSIN MESYLATE
     Indication: Product used for unknown indication
     Dosage: 4 MG, UNKNOWN
  6. BENIDIPINE HYDROCHLORIDE [Concomitant]
     Active Substance: BENIDIPINE HYDROCHLORIDE
     Indication: Product used for unknown indication
  7. METOPROLOL TARTRATE [Concomitant]
     Active Substance: METOPROLOL TARTRATE
     Indication: Product used for unknown indication
     Dosage: 50 MG, UNKNOWN
  8. HYDROCHLOROTHIAZIDE\IRBESARTAN [Concomitant]
     Active Substance: HYDROCHLOROTHIAZIDE\IRBESARTAN
     Indication: Hypertension
  9. CIPRAM S [Concomitant]
     Indication: Product used for unknown indication
     Dosage: 20 MG, DAILY
  10. PRAMIPEXOLE DIHYDROCHLORIDE [Concomitant]
     Active Substance: PRAMIPEXOLE DIHYDROCHLORIDE
     Indication: Restless legs syndrome
  11. EDOXABAN TOSYLATE [Concomitant]
     Active Substance: EDOXABAN TOSYLATE
     Indication: Product used for unknown indication
  12. NUTROF TOTAL [ASCORBIC ACID;COLECALCIFEROL;CO [Concomitant]
     Indication: Eye disorder
  13. EXTRAMAG [Concomitant]
     Indication: Magnesium deficiency

REACTIONS (10)
  - Retinal haemorrhage [Unknown]
  - Dizziness [Unknown]
  - Tension [Unknown]
  - Chest pain [Unknown]
  - Balance disorder [Unknown]
  - Tachycardia [Unknown]
  - Off label use [Unknown]
  - Hypertension [Unknown]
  - Cataract [Unknown]
  - Muscle contractions involuntary [Unknown]

NARRATIVE: CASE EVENT DATE: 20231001
